FAERS Safety Report 11145648 (Version 1)
Quarter: 2015Q2

REPORT INFORMATION
  Report Type: Spontaneous
  Country: US (occurrence: None)
  Receive Date: 20150526
  Receipt Date: 20150526
  Transmission Date: 20150821
  Serious: Yes (Hospitalization)
  Sender: FDA-Public Use
  Company Number: 15X-167-1210452-00

PATIENT
  Age: 70 Year
  Sex: Female

DRUGS (9)
  1. ADCAL D3 (LEKOVIT CA) (COLECALCIFEROL, CALCIUM CARBONATE) [Concomitant]
  2. OMEPRAZOLE. [Concomitant]
     Active Substance: OMEPRAZOLE
  3. SIMVASTATIN (SIMVASTATIN) [Suspect]
     Active Substance: SIMVASTATIN
     Indication: HYPERCHOLESTEROLAEMIA
     Dosage: AT NIGHT (1 IN  1 D), ORAL
     Route: 048
     Dates: end: 20141023
  4. ALENDRONIC ACID [Concomitant]
     Active Substance: ALENDRONIC ACID
  5. OLANZAPINE (OLANZAPINE) [Suspect]
     Active Substance: OLANZAPINE
     Indication: MENTAL DISORDER
     Route: 048
     Dates: end: 20141022
  6. CO-AMOXICLAV (SPEKTRAMOX) (CLAVULANATE POTASSIUM, AMOXICILLIN TRIHYDRATE) [Concomitant]
  7. NAPROXEN. [Concomitant]
     Active Substance: NAPROXEN
  8. LETROZOLE. [Concomitant]
     Active Substance: LETROZOLE
  9. CO-CODAMOL (PANADEINE CO) (CODEINE PHOSPHATE, PARACETAMOL) [Concomitant]

REACTIONS (5)
  - Acute kidney injury [None]
  - Pneumonia [None]
  - Rhabdomyolysis [None]
  - Extrapyramidal disorder [None]
  - Sepsis [None]

NARRATIVE: CASE EVENT DATE: 20141022
